FAERS Safety Report 7372528-6 (Version None)
Quarter: 2011Q1

REPORT INFORMATION
  Report Type: 
  Country: None (occurrence: None)
  Receive Date: 20110316
  Receipt Date: 20110307
  Transmission Date: 20110831
  Serious: Yes (Hospitalization)
  Sender: FDA-Public Use
  Company Number: 028868

PATIENT
  Age: 80 Year
  Sex: Female

DRUGS (3)
  1. TEGRETOL [Concomitant]
  2. DEPAKENE [Concomitant]
  3. KEPPRA [Suspect]
     Indication: EPILEPSY
     Dosage: (500 MG BID ORAL)
     Route: 048
     Dates: start: 20110107

REACTIONS (4)
  - COUGH [None]
  - PNEUMONIA ASPIRATION [None]
  - DYSPHAGIA [None]
  - ODYNOPHAGIA [None]
